FAERS Safety Report 11557629 (Version 1)
Quarter: 2015Q3

REPORT INFORMATION
  Report Type: Spontaneous
  Country: US (occurrence: US)
  Receive Date: 20150927
  Receipt Date: 20150927
  Transmission Date: 20151125
  Serious: No
  Sender: FDA-Public Use
  Company Number: US-ASTRAZENECA-2015SE90074

PATIENT
  Sex: Female
  Weight: 147 kg

DRUGS (32)
  1. BYETTA [Suspect]
     Active Substance: EXENATIDE
     Indication: TYPE 2 DIABETES MELLITUS
     Route: 058
     Dates: start: 2015
  2. OXYCODONE [Concomitant]
     Active Substance: OXYCODONE
     Indication: PAIN
  3. METFORMIN [Concomitant]
     Active Substance: METFORMIN HYDROCHLORIDE
  4. POTASSIUM [Concomitant]
     Active Substance: POTASSIUM
  5. POTASSIUM [Concomitant]
     Active Substance: POTASSIUM
  6. ALBUTEROL. [Concomitant]
     Active Substance: ALBUTEROL
  7. GABAPENTIN. [Concomitant]
     Active Substance: GABAPENTIN
  8. OXYCONTIN [Concomitant]
     Active Substance: OXYCODONE HYDROCHLORIDE
  9. DULOXETINE. [Concomitant]
     Active Substance: DULOXETINE
  10. LANTUS [Concomitant]
     Active Substance: INSULIN GLARGINE
  11. POTASSIUM [Concomitant]
     Active Substance: POTASSIUM
  12. VENTOLIN [Concomitant]
     Active Substance: ALBUTEROL SULFATE
  13. OXYBUTIN [Concomitant]
     Active Substance: OXYBUTYNIN
  14. POTASSIUM [Concomitant]
     Active Substance: POTASSIUM
  15. POTASSIUM [Concomitant]
     Active Substance: POTASSIUM
  16. OXYGEN. [Concomitant]
     Active Substance: OXYGEN
  17. PRILOSEC [Concomitant]
     Active Substance: OMEPRAZOLE MAGNESIUM
  18. POTASSIUM [Concomitant]
     Active Substance: POTASSIUM
  19. POTASSIUM [Concomitant]
     Active Substance: POTASSIUM
  20. POTASSIUM [Concomitant]
     Active Substance: POTASSIUM
  21. POTASSIUM [Concomitant]
     Active Substance: POTASSIUM
  22. POTASSIUM [Concomitant]
     Active Substance: POTASSIUM
  23. FUROSEMIDE. [Concomitant]
     Active Substance: FUROSEMIDE
  24. TRAZODONE [Concomitant]
     Active Substance: TRAZODONE HYDROCHLORIDE
  25. BACLOFEN. [Concomitant]
     Active Substance: BACLOFEN
  26. LISINOPRIL. [Suspect]
     Active Substance: LISINOPRIL
     Route: 048
  27. SYMBICORT [Concomitant]
     Active Substance: BUDESONIDE\FORMOTEROL FUMARATE DIHYDRATE
  28. CLONAZEPAM. [Concomitant]
     Active Substance: CLONAZEPAM
  29. POTASSIUM [Concomitant]
     Active Substance: POTASSIUM
  30. POTASSIUM [Concomitant]
     Active Substance: POTASSIUM
  31. FLUTICASONE [Concomitant]
     Active Substance: FLUTICASONE\FLUTICASONE PROPIONATE
  32. ABILIFY [Concomitant]
     Active Substance: ARIPIPRAZOLE

REACTIONS (2)
  - Off label use [Unknown]
  - Injection site bruising [Unknown]

NARRATIVE: CASE EVENT DATE: 2015
